FAERS Safety Report 8115382-7 (Version None)
Quarter: 2012Q1

REPORT INFORMATION
  Report Type: 
  Country: None (occurrence: None)
  Receive Date: 20120206
  Receipt Date: 20120206
  Transmission Date: 20120608
  Serious: Yes (Other)
  Sender: FDA-Public Use
  Company Number: None

PATIENT
  Age: 74 Year
  Sex: Female

DRUGS (1)
  1. DILTIAZEM HCL [Suspect]
     Dates: start: 20120126, end: 20120126

REACTIONS (1)
  - DIZZINESS [None]
